FAERS Safety Report 7674331-6 (Version None)
Quarter: 2011Q3

REPORT INFORMATION
  Report Type: 
  Country: None (occurrence: None)
  Receive Date: 20110810
  Receipt Date: 20110715
  Transmission Date: 20111222
  Serious: Yes (Other)
  Sender: FDA-Public Use
  Company Number: US-BAYER-2011-060323

PATIENT
  Sex: Male

DRUGS (1)
  1. MAGNEVIST [Suspect]
     Indication: NUCLEAR MAGNETIC RESONANCE IMAGING
     Dosage: UNK
     Route: 042

REACTIONS (4)
  - SWELLING FACE [None]
  - ADVERSE DRUG REACTION [None]
  - URTICARIA [None]
  - OROPHARYNGEAL DISCOMFORT [None]
